FAERS Safety Report 18179925 (Version 1)
Quarter: 2020Q3

REPORT INFORMATION
  Report Type: Spontaneous
  Country: US (occurrence: US)
  Receive Date: 20200820
  Receipt Date: 20200820
  Transmission Date: 20201103
  Serious: Yes (Death)
  Sender: FDA-Public Use
  Company Number: None

PATIENT
  Age: 84 Year
  Sex: Female

DRUGS (1)
  1. ENBREL [Suspect]
     Active Substance: ETANERCEPT
     Indication: PSORIASIS
     Dosage: 50MG/ML (#4 SYR) INJECT WEEKLY
     Route: 058
     Dates: start: 20181107, end: 20200715

REACTIONS (1)
  - Death [None]

NARRATIVE: CASE EVENT DATE: 20200819
